FAERS Safety Report 21944335 (Version 1)
Quarter: 2023Q1

REPORT INFORMATION
  Report Type: Spontaneous
  Country: US (occurrence: None)
  Receive Date: 20230201
  Receipt Date: 20230201
  Transmission Date: 20230417
  Serious: No
  Sender: FDA-Public Use
  Company Number: None

PATIENT
  Age: 68 Year
  Sex: Female
  Weight: 71.67 kg

DRUGS (24)
  1. CAPECITABINE [Suspect]
     Active Substance: CAPECITABINE
     Indication: Breast cancer female
     Dosage: FREQUENCY : TWICE A DAY;?
     Route: 048
     Dates: start: 202209, end: 20230201
  2. ADVIL PM [Concomitant]
     Active Substance: DIPHENHYDRAMINE CITRATE\IBUPROFEN
  3. ASPIRIN [Concomitant]
     Active Substance: ASPIRIN
  4. B COMPLEX [Concomitant]
  5. BACLOFEN [Concomitant]
  6. BENADRYL [Concomitant]
     Active Substance: DIPHENHYDRAMINE HYDROCHLORIDE
  7. ALLERGY [Concomitant]
  8. BIOTIN [Concomitant]
  9. CALCIUM 500 +D [Concomitant]
  10. CRANBERRY [Concomitant]
  11. DDAVP [Concomitant]
     Active Substance: DESMOPRESSIN ACETATE
  12. DESMOPRESSIN [Concomitant]
     Active Substance: DESMOPRESSIN
  13. FASLODEX [Concomitant]
  14. GARLIC [Concomitant]
  15. LORAZEPAM [Concomitant]
  16. MACUVITE EYE CARE [Concomitant]
  17. MAGNESIUM GLUCONATE [Concomitant]
  18. OMEGA 3 [Concomitant]
  19. ONDANSETRON [Concomitant]
  20. PROBIOTIC [Concomitant]
  21. TYLENOL [Concomitant]
     Active Substance: ACETAMINOPHEN
  22. VITAMIN B12 [Concomitant]
  23. VITAMIN D3 [Concomitant]
  24. XGEVA [Concomitant]

REACTIONS (2)
  - Metastases to liver [None]
  - Malignant neoplasm progression [None]
